FAERS Safety Report 11977491 (Version 1)
Quarter: 2016Q1

REPORT INFORMATION
  Report Type: Report from Study
  Country: US (occurrence: US)
  Receive Date: 20160129
  Receipt Date: 20160129
  Transmission Date: 20160526
  Serious: Yes (Other)
  Sender: FDA-Public Use
  Company Number: US-BRISTOL-MYERS SQUIBB COMPANY-BMS-2016-003893

PATIENT
  Sex: Female
  Weight: 108 kg

DRUGS (1)
  1. ABATACEPT [Suspect]
     Active Substance: ABATACEPT
     Indication: RHEUMATOID ARTHRITIS
     Dosage: UNK.LAST INJECTION WAS ON10JAN2016
     Route: 058
     Dates: start: 201510

REACTIONS (6)
  - Weight increased [Unknown]
  - Arthralgia [Unknown]
  - Joint swelling [Unknown]
  - Bone disorder [Unknown]
  - Pain in extremity [Unknown]
  - Arthropathy [Unknown]
